FAERS Safety Report 7272313-X (Version None)
Quarter: 2011Q1

REPORT INFORMATION
  Report Type: 
  Country: None (occurrence: None)
  Receive Date: 20110203
  Receipt Date: 20110128
  Transmission Date: 20110831
  Serious: Yes (Life-Threatening)
  Sender: FDA-Public Use
  Company Number: PHHY2011US06955

PATIENT

DRUGS (1)
  1. CLOZARIL [Suspect]

REACTIONS (3)
  - PNEUMONIA [None]
  - EMPYEMA [None]
  - MALAISE [None]
